FAERS Safety Report 16326049 (Version 1)
Quarter: 2019Q2

REPORT INFORMATION
  Report Type: Spontaneous
  Country: QA (occurrence: QA)
  Receive Date: 20190517
  Receipt Date: 20190517
  Transmission Date: 20190711
  Serious: Yes (Life-Threatening, Hospitalization, Other)
  Sender: FDA-Public Use
  Company Number: PHHY2019QA109278

PATIENT
  Age: 29 Year
  Sex: Male

DRUGS (1)
  1. CIPROFLOXACIN. [Suspect]
     Active Substance: CIPROFLOXACIN
     Indication: URINARY TRACT INFECTION
     Dosage: 1 ?G/L, UNK
     Route: 048

REACTIONS (2)
  - Haemolytic anaemia [Recovered/Resolved]
  - Methaemoglobinaemia [Recovered/Resolved]
